FAERS Safety Report 5388381-6 (Version None)
Quarter: 2007Q3

REPORT INFORMATION
  Report Type: 
  Country: None (occurrence: None)
  Receive Date: 20070712
  Receipt Date: 20070702
  Transmission Date: 20080115
  Serious: Yes (Hospitalization)
  Sender: FDA-Public Use
  Company Number: 2007RR-08327

PATIENT
  Age: 70 Year
  Sex: Female

DRUGS (12)
  1. GABAPENTIN [Suspect]
     Indication: NEURALGIA
     Dosage: 300 MG, ORAL
     Route: 048
     Dates: start: 20070602, end: 20070604
  2. ANASTRAZOLE [Concomitant]
  3. ATORVASTATIN CALCIUM [Concomitant]
  4. BENDROFLUMETHIAZIDE [Concomitant]
  5. BONEFOS [Concomitant]
  6. CARBAMAZEPINE [Concomitant]
  7. CODEINE PHOSPHATE AND ACETAMINOPHEN [Concomitant]
  8. CYCLIZINE [Concomitant]
  9. DICLOFENAC ORAL (DICLOFENAC) [Concomitant]
  10. METOCLOPRAMIDE [Concomitant]
  11. OMEPRAZOLE [Concomitant]
  12. ORAMORPH SR [Concomitant]

REACTIONS (2)
  - MUSCLE SPASMS [None]
  - NYSTAGMUS [None]
